FAERS Safety Report 16506598 (Version 6)
Quarter: 2020Q1

REPORT INFORMATION
  Report Type: Spontaneous
  Country: JP (occurrence: JP)
  Receive Date: 20190701
  Receipt Date: 20200227
  Transmission Date: 20200409
  Serious: Yes (Life-Threatening, Hospitalization, Other)
  Sender: FDA-Public Use
  Company Number: JP-BRISTOL-MYERS SQUIBB COMPANY-BMS-2019-041424

PATIENT
  Age: 81 Year
  Sex: Male
  Weight: 58.5 kg

DRUGS (2)
  1. OPDIVO [Suspect]
     Active Substance: NIVOLUMAB
     Indication: METASTATIC RENAL CELL CARCINOMA
     Dosage: 190 MILLIGRAM
     Route: 041
     Dates: start: 20180703, end: 20180905
  2. OPDIVO [Suspect]
     Active Substance: NIVOLUMAB
     Indication: PRODUCT USED FOR UNKNOWN INDICATION
     Dosage: 240 MILLIGRAM
     Route: 041
     Dates: start: 20180919, end: 20190410

REACTIONS (2)
  - Diabetic ketoacidosis [Unknown]
  - Fulminant type 1 diabetes mellitus [Recovering/Resolving]

NARRATIVE: CASE EVENT DATE: 20190416
